FAERS Safety Report 17473710 (Version 1)
Quarter: 2020Q1

REPORT INFORMATION
  Report Type: Spontaneous
  Country: US (occurrence: US)
  Receive Date: 20200218
  Receipt Date: 20200218
  Transmission Date: 20200409
  Serious: No
  Sender: FDA-Public Use
  Company Number: None

PATIENT
  Age: 69 Year
  Sex: Male

DRUGS (3)
  1. RAPAFLO [Concomitant]
     Active Substance: SILODOSIN
  2. LOSARTAN CIALIS [Concomitant]
  3. ERLEADA [Suspect]
     Active Substance: APALUTAMIDE
     Indication: PROSTATE CANCER
     Route: 048
     Dates: start: 20191214

REACTIONS (2)
  - Benign prostatic hyperplasia [None]
  - Dizziness [None]

NARRATIVE: CASE EVENT DATE: 20200215
